FAERS Safety Report 4703063-9 (Version None)
Quarter: 2005Q2

REPORT INFORMATION
  Report Type: 
  Country: None (occurrence: None)
  Receive Date: 20050628
  Receipt Date: 20050628
  Transmission Date: 20051028
  Serious: Yes (Life-Threatening, Hospitalization)
  Sender: FDA-Public Use
  Company Number: None

PATIENT
  Age: 64 Year
  Sex: Female
  Weight: 128.7 kg

DRUGS (12)
  1. BACTRIM [Suspect]
     Indication: CELLULITIS
     Dosage: DAYS
  2. ATENOLOL [Suspect]
     Dosage: 100 MG PO DAILY [CHRONIC[
     Route: 048
  3. INSULIN [Concomitant]
  4. COMBIVENT [Concomitant]
  5. LASIX [Concomitant]
  6. ACIPGEX [Concomitant]
  7. POTASSIUM CHLORIDE [Concomitant]
  8. DILTIAZEM [Concomitant]
  9. DIOVAN [Concomitant]
  10. FLOVENT [Concomitant]
  11. ASPIRIN [Concomitant]
  12. CLONIDINE [Concomitant]

REACTIONS (10)
  - ABDOMINAL DISCOMFORT [None]
  - ASTHENIA [None]
  - CARDIAC DISORDER [None]
  - CONDITION AGGRAVATED [None]
  - DRUG LEVEL INCREASED [None]
  - FATIGUE [None]
  - HEART RATE DECREASED [None]
  - HYPOTENSION [None]
  - NAUSEA [None]
  - RENAL FAILURE [None]
